FAERS Safety Report 21064271 (Version 2)
Quarter: 2022Q3

REPORT INFORMATION
  Report Type: Spontaneous
  Country: AR (occurrence: AR)
  Receive Date: 20220711
  Receipt Date: 20220901
  Transmission Date: 20221027
  Serious: No
  Sender: FDA-Public Use
  Company Number: AR-PFIZER INC-PV202200018287

PATIENT
  Age: 7 Year
  Sex: Female

DRUGS (1)
  1. GENOTROPIN [Suspect]
     Active Substance: SOMATROPIN
     Indication: Short stature
     Dosage: 0.6 TO 1 MG, EVERY 6 WEEKS

REACTIONS (4)
  - Off label use [Unknown]
  - Device breakage [Unknown]
  - Device leakage [Unknown]
  - Device defective [Unknown]
